FAERS Safety Report 20928899 (Version 1)
Quarter: 2022Q2

REPORT INFORMATION
  Report Type: Spontaneous
  Country: JP (occurrence: JP)
  Receive Date: 20220607
  Receipt Date: 20220607
  Transmission Date: 20220721
  Serious: Yes (Hospitalization)
  Sender: FDA-Public Use
  Company Number: JP-LUPIN PHARMACEUTICALS INC.-2022-08203

PATIENT
  Sex: Female
  Weight: 2.508 kg

DRUGS (6)
  1. DULOXETINE [Suspect]
     Active Substance: DULOXETINE
     Indication: Depressive symptom
     Dosage: 20 MG, QD
     Route: 064
  2. LORAZEPAM [Suspect]
     Active Substance: LORAZEPAM
     Indication: Depressive symptom
     Dosage: 1.5 MG, QD
     Route: 064
  3. FLUNITRAZEPAM [Suspect]
     Active Substance: FLUNITRAZEPAM
     Indication: Depressive symptom
     Dosage: .5 MG, QD
     Route: 064
  4. TRAZODONE [Suspect]
     Active Substance: TRAZODONE HYDROCHLORIDE
     Indication: Depressive symptom
     Dosage: 12.5 MG, QD
     Route: 064
  5. BROTIZOLAM [Suspect]
     Active Substance: BROTIZOLAM
     Indication: Depressive symptom
     Dosage: 0.125 MG, QD
     Route: 064
  6. ATOMOXETINE [Suspect]
     Active Substance: ATOMOXETINE
     Indication: Depressive symptom
     Dosage: 50 MG, QD
     Route: 064

REACTIONS (2)
  - Drug withdrawal syndrome neonatal [Recovered/Resolved]
  - Foetal exposure during pregnancy [Unknown]
